FAERS Safety Report 16818244 (Version 3)
Quarter: 2020Q4

REPORT INFORMATION
  Report Type: Spontaneous
  Country: US (occurrence: US)
  Receive Date: 20190917
  Receipt Date: 20201029
  Transmission Date: 20210113
  Serious: Yes (Other)
  Sender: FDA-Public Use
  Company Number: US-PFIZER INC-2019390478

PATIENT
  Age: 73 Year
  Sex: Female
  Weight: 53.8 kg

DRUGS (1)
  1. HEPARIN SODIUM. [Suspect]
     Active Substance: HEPARIN SODIUM
     Indication: THROMBOSIS PROPHYLAXIS
     Dosage: 5000 IU, 3X/DAY, (EVERY 8 HOURS WAS STARTED THE EVENING OF POST-OPERATIVE DAY (POD) 1)
     Route: 058

REACTIONS (7)
  - Anticoagulation drug level above therapeutic [Unknown]
  - Injection site haemorrhage [Unknown]
  - Activated partial thromboplastin time prolonged [Recovered/Resolved]
  - Haemorrhage [Unknown]
  - Neurologic neglect syndrome [Unknown]
  - Extradural haematoma [Unknown]
  - Asthenia [Unknown]
